FAERS Safety Report 24115806 (Version 1)
Quarter: 2024Q3

REPORT INFORMATION
  Report Type: Spontaneous
  Country: IT (occurrence: IT)
  Receive Date: 20240721
  Receipt Date: 20240721
  Transmission Date: 20241017
  Serious: Yes (Life-Threatening)
  Sender: INTERCHEM
  Company Number: IT-HQ SPECIALTY-IT-2024INT000069

PATIENT
  Age: 14 Day
  Sex: Female

DRUGS (1)
  1. DEXMEDETOMIDINE HYDROCHLORIDE [Suspect]
     Active Substance: DEXMEDETOMIDINE HYDROCHLORIDE
     Indication: Product used for unknown indication
     Dosage: SINGLE ORAL ADMINISTRATION (OVERDOSE DUE TO ADMINISTRATION ERROR) (2 ML)
     Route: 048
     Dates: start: 20240306, end: 20240306

REACTIONS (10)
  - Depressed level of consciousness [Recovered/Resolved]
  - Hypotonia [Recovered/Resolved]
  - Hyporesponsive to stimuli [Recovered/Resolved]
  - Accidental overdose [Unknown]
  - Hyperglycaemia [Recovered/Resolved]
  - Apnoea [Recovered/Resolved]
  - Wrong product administered [Unknown]
  - Product confusion [Unknown]
  - Product administered to patient of inappropriate age [Unknown]
  - Product use issue [Unknown]

NARRATIVE: CASE EVENT DATE: 20240306
